FAERS Safety Report 9124426 (Version 2)
Quarter: 2013Q4

REPORT INFORMATION
  Report Type: Report from Study
  Country: NL (occurrence: NL)
  Receive Date: 20130116
  Receipt Date: 20131002
  Transmission Date: 20140711
  Serious: Yes (Death)
  Sender: FDA-Public Use
  Company Number: PHHY2013NL003768

PATIENT
  Sex: Male

DRUGS (4)
  1. ZOMETA [Suspect]
     Indication: PROSTATE CANCER METASTATIC
     Dosage: 4 MG/100 ML, EVERY 28 DAYS
     Route: 042
  2. ZOMETA [Suspect]
     Dosage: 4 MG/100 ML, EVERY 28 DAYS
     Route: 042
     Dates: start: 20111122
  3. ZOMETA [Suspect]
     Dosage: 4 MG/100 ML, EVERY 28 DAYS
     Route: 042
     Dates: start: 20121119
  4. ZOMETA [Suspect]
     Dosage: 4 MG/100 ML, EVERY 28 DAYS
     Route: 042
     Dates: start: 20121219

REACTIONS (1)
  - Death [Fatal]
